FAERS Safety Report 5312044-6 (Version None)
Quarter: 2007Q2

REPORT INFORMATION
  Report Type: 
  Country: None (occurrence: None)
  Receive Date: 20070430
  Receipt Date: 20060807
  Transmission Date: 20071010
  Serious: No
  Sender: FDA-Public Use
  Company Number: 2006UW15678

PATIENT
  Age: 78 Year
  Sex: Female
  Weight: 81.8 kg

DRUGS (9)
  1. NEXIUM [Suspect]
     Indication: GASTROOESOPHAGEAL REFLUX DISEASE
     Route: 048
  2. BENEFIBER FIBER SUPPLEMENT SUGAR FREE [Suspect]
     Indication: BOWEL MOVEMENT IRREGULARITY
     Route: 048
  3. ZOCOR [Concomitant]
  4. GLYBURIDE [Concomitant]
  5. ATENOLOL [Concomitant]
  6. ZOLOFT [Concomitant]
  7. LEVOTHROID [Concomitant]
  8. DIOVAN HCT [Concomitant]
  9. DITROPAN XL [Concomitant]

REACTIONS (2)
  - PAIN OF SKIN [None]
  - PRURITUS [None]
